FAERS Safety Report 5776063-8 (Version None)
Quarter: 2008Q2

REPORT INFORMATION
  Report Type: 
  Country: None (occurrence: None)
  Receive Date: 20080613
  Receipt Date: 20080602
  Transmission Date: 20081010
  Serious: Yes (Other)
  Sender: FDA-Public Use
  Company Number: 167-20785-08050878

PATIENT
  Age: 60 Year

DRUGS (8)
  1. THALIDOMIDE [Suspect]
     Indication: MULTIPLE MYELOMA
     Dosage: 100MG-200MG, ON DAYS 1-21, ORAL
     Route: 048
     Dates: start: 20041001, end: 20070501
  2. IDARUBICIN HCL [Concomitant]
  3. DEXAMETHASONE TAB [Concomitant]
  4. ETOPOSIDE [Concomitant]
  5. ACYCLOVIR [Concomitant]
  6. BACTRIM [Concomitant]
  7. LANZOPRAZOLE (LANZOPRAZOLE) [Concomitant]
  8. G-CSF (GRANULOCYTE COLONY STIMULATION FACTOR) [Concomitant]

REACTIONS (6)
  - DIARRHOEA [None]
  - EMBOLISM [None]
  - FEBRILE NEUTROPENIA [None]
  - INFECTION [None]
  - NEPHROPATHY TOXIC [None]
  - NEUROPATHY PERIPHERAL [None]
